FAERS Safety Report 7071029-2 (Version None)
Quarter: 2010Q4

REPORT INFORMATION
  Report Type: 
  Country: None (occurrence: None)
  Receive Date: 20101029
  Receipt Date: 20101018
  Transmission Date: 20110411
  Serious: Yes (Other)
  Sender: FDA-Public Use
  Company Number: US-PFIZER INC-2010132191

PATIENT
  Sex: Male
  Weight: 121.54 kg

DRUGS (11)
  1. REVATIO [Suspect]
     Indication: PULMONARY HYPERTENSION
     Dosage: 20 MG, 3X/DAY
     Route: 048
     Dates: start: 20101014
  2. TOPROL-XL [Concomitant]
     Dosage: 50 MG, 1X/DAY
     Route: 048
  3. LISINOPRIL [Concomitant]
     Dosage: 10 MG, UNK
     Route: 048
  4. CRESTOR [Concomitant]
     Indication: BLOOD CHOLESTEROL INCREASED
     Dosage: 20 MG, UNK
     Route: 048
  5. BUSPAR [Concomitant]
     Indication: NEUROPATHY PERIPHERAL
     Dosage: UNK MG, 3X/DAY
     Route: 048
  6. AMBIEN [Concomitant]
     Indication: SLEEP DISORDER
     Dosage: 10 MG, 1X/DAY
     Route: 048
  7. PLAVIX [Concomitant]
     Indication: STENT PLACEMENT
     Dosage: 75 MG, 1X/DAY
     Route: 048
  8. ACETYLSALICYLIC ACID [Concomitant]
     Dosage: 325 MG, 1X/DAY
     Route: 048
  9. AMARYL [Concomitant]
     Dosage: 2 MG, UNK
     Route: 048
  10. ALLOPURINOL [Concomitant]
     Indication: GOUT
     Dosage: 100 MG, 1X/DAY
     Route: 048
  11. PROTONIX [Concomitant]
     Dosage: 40 MG, 1X/DAY
     Route: 048

REACTIONS (3)
  - DRUG INEFFECTIVE [None]
  - DYSPNOEA [None]
  - OXYGEN SATURATION DECREASED [None]
